FAERS Safety Report 4944179-1 (Version None)
Quarter: 2006Q1

REPORT INFORMATION
  Report Type: 
  Country: None (occurrence: None)
  Receive Date: 20060309
  Receipt Date: 20060228
  Transmission Date: 20060701
  Serious: Yes (Death)
  Sender: FDA-Public Use
  Company Number: 2006BI000763

PATIENT
  Age: 58 Year
  Sex: Female

DRUGS (7)
  1. AMEVIVE [Suspect]
     Indication: PSORIASIS
     Dosage: 15 UG; QW; IM
     Route: 030
     Dates: start: 20050614
  2. AMITRIPTYLINE [Concomitant]
  3. FUROSEMIDE [Concomitant]
  4. OMEPRAZOLE [Concomitant]
  5. ULTRAN [Concomitant]
  6. VICODIN [Concomitant]
  7. IBUPROFEN [Concomitant]

REACTIONS (2)
  - FALL [None]
  - HEAD INJURY [None]
